FAERS Safety Report 9992617 (Version 1)
Quarter: 2014Q1

REPORT INFORMATION
  Report Type: Report from Study
  Country: US (occurrence: US)
  Receive Date: 20140310
  Receipt Date: 20140310
  Transmission Date: 20141002
  Serious: Yes (Disabling, Other)
  Sender: FDA-Public Use
  Company Number: US-ABBVIE-14P-163-1208728-00

PATIENT
  Sex: Male
  Weight: 59.02 kg

DRUGS (9)
  1. HUMIRA [Suspect]
     Indication: CROHN^S DISEASE
     Route: 058
     Dates: start: 2009, end: 2011
  2. HUMIRA [Interacting]
     Route: 058
     Dates: start: 2011, end: 2011
  3. HUMIRA [Interacting]
     Route: 058
     Dates: start: 2011, end: 201209
  4. HUMIRA [Interacting]
     Route: 058
     Dates: start: 201303
  5. PREDNISONE [Interacting]
     Indication: PRODUCT USED FOR UNKNOWN INDICATION
     Dates: end: 2011
  6. PERCOCET [Suspect]
     Indication: PRODUCT USED FOR UNKNOWN INDICATION
  7. TYLENOL WITH CODEINE [Suspect]
     Indication: PRODUCT USED FOR UNKNOWN INDICATION
  8. HYDROCODONE [Suspect]
     Indication: PRODUCT USED FOR UNKNOWN INDICATION
  9. MARIJUANA [Concomitant]
     Indication: CROHN^S DISEASE

REACTIONS (9)
  - Disability [Not Recovered/Not Resolved]
  - Anal fistula [Recovered/Resolved]
  - Crohn^s disease [Not Recovered/Not Resolved]
  - Drug hypersensitivity [Not Recovered/Not Resolved]
  - Nervousness [Not Recovered/Not Resolved]
  - Drug ineffective [Not Recovered/Not Resolved]
  - Rash [Recovered/Resolved]
  - Drug interaction [Not Recovered/Not Resolved]
  - Tooth extraction [Recovered/Resolved]
